FAERS Safety Report 23545474 (Version 2)
Quarter: 2024Q1

REPORT INFORMATION
  Report Type: Spontaneous
  Country: US (occurrence: US)
  Receive Date: 20240220
  Receipt Date: 20240314
  Transmission Date: 20240409
  Serious: Yes (Other)
  Sender: FDA-Public Use
  Company Number: US-PFIZER INC-202400043485

PATIENT
  Age: 13 Year
  Sex: Male

DRUGS (1)
  1. OXBRYTA [Suspect]
     Active Substance: VOXELOTOR
     Dosage: 300 MG TABLETS 3 TABLETS
     Route: 048
     Dates: start: 202207, end: 2023

REACTIONS (5)
  - Liver disorder [Unknown]
  - Off label use [Unknown]
  - Product dose omission issue [Unknown]
  - Renal function test abnormal [Not Recovered/Not Resolved]
  - Hepatic enzyme decreased [Not Recovered/Not Resolved]

NARRATIVE: CASE EVENT DATE: 20220701
